FAERS Safety Report 5068547-5 (Version None)
Quarter: 2006Q3

REPORT INFORMATION
  Report Type: 
  Country: None (occurrence: None)
  Receive Date: 20060802
  Receipt Date: 20051117
  Transmission Date: 20061208
  Serious: No
  Sender: FDA-Public Use
  Company Number: US-BRISTOL-MYERS SQUIBB COMPANY-13185178

PATIENT
  Age: 38 Year
  Sex: Female
  Weight: 120 kg

DRUGS (9)
  1. COUMADIN [Suspect]
     Indication: ATRIAL FIBRILLATION
     Dosage: 10 MG SIX DAYS PER WEEK AND 2.5MG ONCE WEEKLY
  2. COUMADIN [Suspect]
     Indication: CARDIOMEGALY
     Dosage: 10 MG SIX DAYS PER WEEK AND 2.5MG ONCE WEEKLY
  3. ADVAIR DISKUS 100/50 [Concomitant]
  4. METFORMIN HYDROCHLORIDE [Concomitant]
  5. AVANDIA [Concomitant]
  6. ACETAMINOPHEN [Concomitant]
  7. PROZAC [Concomitant]
  8. XANAX [Concomitant]
  9. POTASSIUM [Concomitant]

REACTIONS (2)
  - BLOOD POTASSIUM DECREASED [None]
  - DIABETES MELLITUS [None]
